FAERS Safety Report 12064280 (Version 1)
Quarter: 2016Q1

REPORT INFORMATION
  Report Type: Spontaneous
  Country: US (occurrence: US)
  Receive Date: 20160210
  Receipt Date: 20160210
  Transmission Date: 20160526
  Serious: No
  Sender: FDA-Public Use
  Company Number: US-ALLERGAN-1512112US

PATIENT
  Age: 25 Year
  Sex: Female
  Weight: 100.5 kg

DRUGS (1)
  1. BOTOX [Suspect]
     Active Substance: ONABOTULINUMTOXINA
     Indication: MIGRAINE
     Dosage: UNK, SINGLE
     Route: 030

REACTIONS (5)
  - Neck pain [Unknown]
  - Nausea [Unknown]
  - Dizziness [Unknown]
  - Migraine [Unknown]
  - Vomiting [Unknown]
